FAERS Safety Report 17974297 (Version 1)
Quarter: 2020Q3

REPORT INFORMATION
  Report Type: Spontaneous
  Country: CA (occurrence: CA)
  Receive Date: 20200702
  Receipt Date: 20200702
  Transmission Date: 20201103
  Serious: Yes (Death)
  Sender: FDA-Public Use
  Company Number: CA-PFIZER INC-2020253723

PATIENT
  Age: 73 Year
  Sex: Male

DRUGS (11)
  1. UPTRAVI [Concomitant]
     Active Substance: SELEXIPAG
  2. AMITRIPTYLINE [Concomitant]
     Active Substance: AMITRIPTYLINE
  3. LASIX [Concomitant]
     Active Substance: FUROSEMIDE
  4. VITAMIN D3 [Concomitant]
     Active Substance: CHOLECALCIFEROL
  5. POTASSIUM [Concomitant]
     Active Substance: POTASSIUM
  6. TRACLEER [Concomitant]
     Active Substance: BOSENTAN
  7. MOMETASONE [Concomitant]
     Active Substance: MOMETASONE
  8. EZETROL [Concomitant]
     Active Substance: EZETIMIBE
  9. ATORVASTATIN [Concomitant]
     Active Substance: ATORVASTATIN
  10. MONOCOR [Concomitant]
     Active Substance: BISOPROLOL FUMARATE
  11. REVATIO [Suspect]
     Active Substance: SILDENAFIL CITRATE
     Indication: PULMONARY ARTERIAL HYPERTENSION
     Dosage: 20 MG, 3X/DAY
     Route: 048
     Dates: start: 20180327

REACTIONS (1)
  - Death [Fatal]

NARRATIVE: CASE EVENT DATE: 202006
